FAERS Safety Report 23413341 (Version 1)
Quarter: 2024Q1

REPORT INFORMATION
  Report Type: Spontaneous
  Country: US (occurrence: US)
  Receive Date: 20240117
  Receipt Date: 20240117
  Transmission Date: 20240410
  Serious: No
  Sender: FDA-Public Use
  Company Number: US-NOVOPROD-1138292

PATIENT
  Sex: Female

DRUGS (1)
  1. OZEMPIC [Suspect]
     Active Substance: SEMAGLUTIDE
     Indication: Type 1 diabetes mellitus
     Dosage: 0.25 MG
     Route: 058
     Dates: start: 20230623, end: 20230728

REACTIONS (6)
  - Muscle spasms [Not Recovered/Not Resolved]
  - Feeding disorder [Not Recovered/Not Resolved]
  - Quality of life decreased [Unknown]
  - Gastrointestinal hypermotility [Unknown]
  - Bile acid malabsorption [Unknown]
  - Diarrhoea [Not Recovered/Not Resolved]

NARRATIVE: CASE EVENT DATE: 20230729
